FAERS Safety Report 10234247 (Version 2)
Quarter: 2014Q3

REPORT INFORMATION
  Report Type: Spontaneous
  Country: US (occurrence: US)
  Receive Date: 20140612
  Receipt Date: 20140728
  Transmission Date: 20150326
  Serious: Yes (Disabling, Other)
  Sender: FDA-Public Use
  Company Number: CHPA2014US007893

PATIENT
  Sex: Female

DRUGS (1)
  1. KERI ADVANCED [Suspect]
     Active Substance: LANOLIN\MINERAL OIL
     Dosage: UNK
     Route: 061

REACTIONS (2)
  - Disability [Unknown]
  - Road traffic accident [Unknown]
